FAERS Safety Report 13075240 (Version 1)
Quarter: 2016Q4

REPORT INFORMATION
  Report Type: Spontaneous
  Country: DE (occurrence: DE)
  Receive Date: 20161230
  Receipt Date: 20161230
  Transmission Date: 20170207
  Serious: Yes (Other)
  Sender: FDA-Public Use
  Company Number: DE-TEVA-722465GER

PATIENT
  Age: 40 Year
  Sex: Female

DRUGS (8)
  1. CORTISON [Concomitant]
     Active Substance: CORTISONE ACETATE
  2. PREDNISOLON [Concomitant]
     Active Substance: PREDNISOLONE
  3. EISEN [Concomitant]
  4. PANTOPRAZOL RATIOPHARM 20 MG [Suspect]
     Active Substance: PANTOPRAZOLE SODIUM
     Dosage: 1-0-0
     Route: 048
     Dates: start: 2014
  5. KRAEUTERBLUT [Concomitant]
  6. VALDOXAN [Concomitant]
     Active Substance: AGOMELATINE
  7. BETAHISTIN [Concomitant]
  8. CALCIUM [Concomitant]
     Active Substance: CALCIUM

REACTIONS (1)
  - Haemoglobin decreased [Not Recovered/Not Resolved]

NARRATIVE: CASE EVENT DATE: 201608
